FAERS Safety Report 4427766-9 (Version None)
Quarter: 2004Q3

REPORT INFORMATION
  Report Type: 
  Country: None (occurrence: None)
  Receive Date: 20040816
  Receipt Date: 20040816
  Transmission Date: 20050211
  Serious: Yes (Death)
  Sender: FDA-Public Use
  Company Number: None

PATIENT
  Age: 74 Year
  Sex: Male
  Weight: 65.7716 kg

DRUGS (8)
  1. PEG-INTRON [Suspect]
     Indication: MALIGNANT MELANOMA
     Dosage: 33 MCG WKLY SC
     Route: 058
     Dates: start: 20040611, end: 20040716
  2. THALIDOMIDE [Suspect]
     Indication: MALIGNANT MELANOMA
     Dosage: 200 MG Q HS ORAL
     Route: 048
     Dates: start: 20040611, end: 20040717
  3. TOPROL-XL [Concomitant]
  4. ISORDIL [Concomitant]
  5. ACCUPRIL [Concomitant]
  6. ACTOS [Concomitant]
  7. LENTE INSULIN [Concomitant]
  8. HUMALOG [Concomitant]

REACTIONS (2)
  - BRAIN HERNIATION [None]
  - DISEASE PROGRESSION [None]
